FAERS Safety Report 4288451-X (Version None)
Quarter: 2004Q1

REPORT INFORMATION
  Report Type: 
  Country: None (occurrence: None)
  Receive Date: 20040205
  Receipt Date: 20040126
  Transmission Date: 20041129
  Serious: No
  Sender: FDA-Public Use
  Company Number: 04P-167-0248940-00

PATIENT
  Age: 58 Year
  Sex: Female
  Weight: 126 kg

DRUGS (5)
  1. MERIDIA [Suspect]
     Indication: WEIGHT CONTROL
     Dosage: 1 IN 1 D, PER ORAL
     Route: 048
     Dates: start: 20011211, end: 20011220
  2. BEDROGLUMETHIAZIDE [Concomitant]
  3. RAMIPRIL [Concomitant]
  4. AMLODIPINE BESYLATE [Concomitant]
  5. DICLOFENAC [Concomitant]

REACTIONS (1)
  - PHLEBITIS [None]
